FAERS Safety Report 5242428-6 (Version None)
Quarter: 2007Q1

REPORT INFORMATION
  Report Type: 
  Country: None (occurrence: None)
  Receive Date: 20070214
  Receipt Date: 20070201
  Transmission Date: 20070707
  Serious: Yes (Death)
  Sender: FDA-Public Use
  Company Number: 2007-00642

PATIENT
  Age: 52 Year
  Sex: 0

DRUGS (2)
  1. LOXAPINE [Suspect]
     Indication: DRUG USE FOR UNKNOWN INDICATION
  2. FLURAZEPAM [Suspect]
     Indication: DRUG USE FOR UNKNOWN INDICATION

REACTIONS (1)
  - DEATH [None]
